FAERS Safety Report 18857574 (Version 1)
Quarter: 2021Q1

REPORT INFORMATION
  Report Type: Spontaneous
  Country: US (occurrence: US)
  Receive Date: 20210208
  Receipt Date: 20210208
  Transmission Date: 20210420
  Serious: No
  Sender: FDA-Public Use
  Company Number: US-LUPIN PHARMACEUTICALS INC.-2021-01278

PATIENT
  Age: 11 Year
  Sex: Female

DRUGS (4)
  1. DEXTROAMPHET SACCHARAT, AMPHET ASPARTATE, DEXTROAMPHET SULFATE AND AMPHET SULFAT [Suspect]
     Active Substance: AMPHETAMINE ASPARTATE\AMPHETAMINE SULFATE\DEXTROAMPHETAMINE SACCHARATE\DEXTROAMPHETAMINE SULFATE
     Indication: ATAXIA
     Dosage: UNK
     Route: 065
  2. FLUOXETINE [Suspect]
     Active Substance: FLUOXETINE HYDROCHLORIDE
     Indication: ATAXIA
     Dosage: UNK
     Route: 065
  3. LYSINE [Suspect]
     Active Substance: LYSINE
     Indication: ATAXIA
     Dosage: UNK
     Route: 065
  4. PHOSPHATIDYLSERINE [Suspect]
     Active Substance: PHOSPHATIDYL SERINE
     Indication: ATAXIA
     Dosage: UNK
     Route: 065

REACTIONS (1)
  - Off label use [Unknown]
